FAERS Safety Report 9644877 (Version 1)
Quarter: 2013Q4

REPORT INFORMATION
  Report Type: Spontaneous
  Country: IT (occurrence: IT)
  Receive Date: 20131025
  Receipt Date: 20131025
  Transmission Date: 20140711
  Serious: Yes (Other)
  Sender: FDA-Public Use
  Company Number: PHHY2013IT120122

PATIENT
  Age: 65 Year
  Sex: Female

DRUGS (3)
  1. TASIGNA [Suspect]
     Indication: CHRONIC MYELOID LEUKAEMIA
     Dosage: 600 MG, QD
     Route: 048
     Dates: start: 20100531
  2. TASIGNA [Suspect]
     Dosage: 400 UNK, UNK
  3. TASIGNA [Suspect]
     Dosage: 600 MG, QD

REACTIONS (1)
  - Pancreatic enzymes abnormal [Recovered/Resolved]
